FAERS Safety Report 9585743 (Version 1)
Quarter: 2013Q4

REPORT INFORMATION
  Report Type: Spontaneous
  Country: US (occurrence: None)
  Receive Date: 20131002
  Receipt Date: 20131002
  Transmission Date: 20140711
  Serious: Yes (Death, Life-Threatening, Hospitalization)
  Sender: FDA-Public Use
  Company Number: None

PATIENT
  Age: 83 Year
  Sex: Male
  Weight: 83 kg

DRUGS (9)
  1. AMIODARONE [Suspect]
     Indication: ATRIAL FIBRILLATION
     Route: 047
     Dates: start: 20130816, end: 20130824
  2. AMLODIPINE [Concomitant]
  3. CHOLECALCIFEROL [Concomitant]
  4. CLONIDINE [Concomitant]
  5. DILTIAZEM [Concomitant]
  6. FOLATE [Concomitant]
  7. LATANOPROST OPHTH [Concomitant]
  8. METOPROLOL [Concomitant]
  9. TAMSULOSIN [Concomitant]

REACTIONS (4)
  - Syncope [None]
  - Hypertension [None]
  - Cardio-respiratory arrest [None]
  - Product quality issue [None]
